FAERS Safety Report 6847920-6 (Version None)
Quarter: 2010Q3

REPORT INFORMATION
  Report Type: 
  Country: None (occurrence: None)
  Receive Date: 20100716
  Receipt Date: 20100707
  Transmission Date: 20110219
  Serious: Yes (Other)
  Sender: FDA-Public Use
  Company Number: CO-PFIZER INC-2010085991

PATIENT
  Age: 58 Year
  Sex: Female

DRUGS (2)
  1. DETRUSITOL [Suspect]
     Indication: HYPERTONIC BLADDER
     Dosage: 2 MG, 1X/DAY
     Route: 048
     Dates: start: 20091001, end: 20100101
  2. DETRUSITOL [Suspect]
     Dosage: 2 MG, 1X/DAY
     Route: 048
     Dates: start: 20080101, end: 20090101

REACTIONS (1)
  - VISUAL ACUITY REDUCED [None]
